FAERS Safety Report 9301999 (Version 2)
Quarter: 2013Q2

REPORT INFORMATION
  Report Type: Spontaneous
  Country: US (occurrence: US)
  Receive Date: 20130521
  Receipt Date: 20130522
  Transmission Date: 20140414
  Serious: No
  Sender: FDA-Public Use
  Company Number: US-009507513-1305USA004959

PATIENT
  Age: 32 Year
  Sex: Female

DRUGS (9)
  1. SAPHRIS [Suspect]
     Indication: BIPOLAR I DISORDER
     Dosage: 10 MG, BID
     Route: 060
     Dates: start: 201303
  2. SAPHRIS [Suspect]
     Indication: INTERMITTENT EXPLOSIVE DISORDER
     Dosage: 10 MG, QD
     Route: 060
     Dates: start: 2013
  3. COGENTIN [Concomitant]
  4. AMBIEN [Concomitant]
  5. LAMICTAL [Concomitant]
  6. FLONASE [Concomitant]
  7. ALBUTEROL [Concomitant]
  8. SYNTHROID [Concomitant]
  9. COLACE [Concomitant]

REACTIONS (2)
  - Intermittent explosive disorder [Recovering/Resolving]
  - Sedation [Recovering/Resolving]
